FAERS Safety Report 15735094 (Version 1)
Quarter: 2018Q4

REPORT INFORMATION
  Report Type: Spontaneous
  Country: US (occurrence: US)
  Receive Date: 20181203
  Receipt Date: 20181203
  Transmission Date: 20190205
  Serious: Yes (Hospitalization)
  Sender: FDA-Public Use
  Company Number: None

PATIENT
  Age: 94 Year
  Sex: Male

DRUGS (1)
  1. ZYTIGA [Suspect]
     Active Substance: ABIRATERONE ACETATE
     Dates: start: 201801, end: 201811

REACTIONS (4)
  - Gastric disorder [None]
  - Gastrointestinal obstruction [None]
  - Metastases to bone [None]
  - Metastases to central nervous system [None]

NARRATIVE: CASE EVENT DATE: 20181130
